FAERS Safety Report 9364137 (Version 2)
Quarter: 2013Q2

REPORT INFORMATION
  Report Type: Spontaneous
  Country: US (occurrence: None)
  Receive Date: 20130619
  Receipt Date: 20130624
  Transmission Date: 20140414
  Serious: Yes (Other)
  Sender: FDA-Public Use
  Company Number: VAL_02589_2013

PATIENT
  Sex: 0

DRUGS (2)
  1. METHYLERGOMETRINE [Suspect]
     Indication: PRODUCT USED FOR UNKNOWN INDICATION
     Dosage: (DF)
     Route: 064
  2. PITOCIN /00071301/ [Concomitant]

REACTIONS (4)
  - Foetal exposure during delivery [None]
  - Intraventricular haemorrhage [None]
  - Apgar score low [None]
  - Caesarean section [None]
